FAERS Safety Report 22016844 (Version 5)
Quarter: 2023Q2

REPORT INFORMATION
  Report Type: Report from Study
  Country: US (occurrence: US)
  Receive Date: 20230221
  Receipt Date: 20230605
  Transmission Date: 20230722
  Serious: No
  Sender: FDA-Public Use
  Company Number: US-002147023-NVSC2023US035697

PATIENT
  Sex: Female

DRUGS (1)
  1. KESIMPTA [Suspect]
     Active Substance: OFATUMUMAB
     Indication: Multiple sclerosis
     Dosage: UNK
     Route: 065

REACTIONS (9)
  - Malaise [Unknown]
  - Paraesthesia [Unknown]
  - Confusional state [Unknown]
  - Hypoaesthesia [Unknown]
  - Anxiety [Unknown]
  - Headache [Unknown]
  - Nausea [Unknown]
  - Myalgia [Unknown]
  - Chills [Unknown]
